FAERS Safety Report 13142825 (Version 1)
Quarter: 2017Q1

REPORT INFORMATION
  Report Type: Spontaneous
  Country: US (occurrence: US)
  Receive Date: 20170123
  Receipt Date: 20170123
  Transmission Date: 20170428
  Serious: No
  Sender: FDA-Public Use
  Company Number: None

PATIENT
  Age: 57 Year
  Sex: Female

DRUGS (1)
  1. TASIGNA [Suspect]
     Active Substance: NILOTINIB
     Indication: ACUTE LYMPHOCYTIC LEUKAEMIA
     Route: 048
     Dates: start: 201608

REACTIONS (5)
  - Rash [None]
  - Dehydration [None]
  - Ileus [None]
  - Intestinal obstruction [None]
  - Dyspnoea [None]

NARRATIVE: CASE EVENT DATE: 20170123
